FAERS Safety Report 7890063 (Version 2)
Quarter: 2013Q4

REPORT INFORMATION
  Report Type: Spontaneous
  Country: US (occurrence: US)
  Receive Date: 20110407
  Receipt Date: 20131125
  Transmission Date: 20140711
  Serious: Yes (Death, Disabling, Other)
  Sender: FDA-Public Use
  Company Number: US-TEVA-274874USA

PATIENT
  Sex: Male

DRUGS (2)
  1. METOCLOPRAMIDE [Suspect]
  2. REGLAN [Suspect]

REACTIONS (6)
  - Tardive dyskinesia [Fatal]
  - Akathisia [Fatal]
  - Nervous system disorder [Fatal]
  - Extrapyramidal disorder [Fatal]
  - Suicidal ideation [Unknown]
  - Completed suicide [Fatal]
